FAERS Safety Report 7600753-5 (Version None)
Quarter: 2011Q3

REPORT INFORMATION
  Report Type: 
  Country: None (occurrence: None)
  Receive Date: 20110711
  Receipt Date: 20110630
  Transmission Date: 20111222
  Serious: Yes (Hospitalization)
  Sender: FDA-Public Use
  Company Number: DE-ROCHE-788455

PATIENT
  Sex: Female
  Weight: 63 kg

DRUGS (1)
  1. XELODA [Suspect]
     Route: 048
     Dates: start: 20100921, end: 20101025

REACTIONS (4)
  - SMALL INTESTINAL PERFORATION [None]
  - CHOLECYSTITIS [None]
  - ILEUS PARALYTIC [None]
  - INFECTIOUS PERITONITIS [None]
